FAERS Safety Report 8904233 (Version 1)
Quarter: 2012Q4

REPORT INFORMATION
  Report Type: Report from Study
  Country: DE (occurrence: DE)
  Receive Date: 20121112
  Receipt Date: 20121112
  Transmission Date: 20130627
  Serious: Yes (Hospitalization)
  Sender: FDA-Public Use
  Company Number: DE-ABBOTT-12P-062-1003916-00

PATIENT
  Age: 26 Year
  Sex: Female

DRUGS (3)
  1. HUMIRA [Suspect]
     Indication: CROHN^S DISEASE
     Dosage: baseline
     Route: 058
     Dates: start: 20081209, end: 20081209
  2. HUMIRA [Suspect]
     Dosage: week 2
     Route: 058
     Dates: end: 200911
  3. HUMIRA [Suspect]
     Route: 058
     Dates: start: 20091115, end: 20091117

REACTIONS (1)
  - Anal fistula [Unknown]
